FAERS Safety Report 13087399 (Version 1)
Quarter: 2017Q1

REPORT INFORMATION
  Report Type: Spontaneous
  Country: US (occurrence: US)
  Receive Date: 20170105
  Receipt Date: 20170105
  Transmission Date: 20170428
  Serious: Yes (Other)
  Sender: FDA-Public Use
  Company Number: US-AMGEN-USASP2017000592

PATIENT

DRUGS (1)
  1. PROLIA [Suspect]
     Active Substance: DENOSUMAB
     Indication: PRODUCT USED FOR UNKNOWN INDICATION
     Dosage: UNK
     Route: 065

REACTIONS (7)
  - Quality of life decreased [Unknown]
  - Mobility decreased [Unknown]
  - Upper-airway cough syndrome [Unknown]
  - Back pain [Unknown]
  - Urinary incontinence [Unknown]
  - Arthralgia [Unknown]
  - Pain in extremity [Unknown]
